FAERS Safety Report 6741911-1 (Version None)
Quarter: 2010Q2

REPORT INFORMATION
  Report Type: 
  Country: None (occurrence: None)
  Receive Date: 20100526
  Receipt Date: 20100520
  Transmission Date: 20101027
  Serious: Yes (Hospitalization)
  Sender: FDA-Public Use
  Company Number: A0860623A

PATIENT
  Age: 85 Year
  Sex: Male

DRUGS (8)
  1. ARIXTRA [Suspect]
     Indication: ANTICOAGULANT THERAPY
     Dosage: 7.5MG PER DAY
     Route: 058
     Dates: start: 20100323, end: 20100514
  2. PREDNISONE TAB [Concomitant]
  3. WARFARIN SODIUM [Concomitant]
  4. MULTI-VITAMINS [Concomitant]
  5. CALCIUM CARBONATE [Concomitant]
  6. ACTONEL [Concomitant]
  7. VITAMIN C [Concomitant]
  8. LUPRON [Concomitant]

REACTIONS (1)
  - CATARACT OPERATION [None]
